FAERS Safety Report 9967694 (Version 1)
Quarter: 2014Q1

REPORT INFORMATION
  Report Type: Spontaneous
  Country: FR (occurrence: FR)
  Receive Date: 20140306
  Receipt Date: 20140306
  Transmission Date: 20141002
  Serious: Yes (Hospitalization)
  Sender: FDA-Public Use
  Company Number: FR-ROCHE-1356528

PATIENT
  Age: 51 Year
  Sex: Male

DRUGS (5)
  1. AVASTIN [Suspect]
     Indication: COLON CANCER METASTATIC
     Route: 042
     Dates: start: 20131122, end: 20131210
  2. IRINOTECAN ACCORD [Suspect]
     Indication: COLON CANCER METASTATIC
     Route: 042
     Dates: start: 20131122, end: 20131210
  3. OXALIPLATIN ACCORD [Suspect]
     Indication: COLON CANCER METASTATIC
     Route: 042
     Dates: start: 20131122, end: 20131210
  4. FLUOROURACILE [Suspect]
     Indication: COLON CANCER METASTATIC
     Route: 042
     Dates: start: 20131122, end: 20131210
  5. ELVORINE [Suspect]
     Indication: COLON CANCER METASTATIC
     Route: 042
     Dates: start: 20131122, end: 20131210

REACTIONS (2)
  - Chest pain [Recovered/Resolved]
  - Coronary artery disease [Recovered/Resolved with Sequelae]
